FAERS Safety Report 15814487 (Version 1)
Quarter: 2019Q1

REPORT INFORMATION
  Report Type: Spontaneous
  Country: US (occurrence: US)
  Receive Date: 20190111
  Receipt Date: 20190111
  Transmission Date: 20190417
  Serious: Yes (Other)
  Sender: FDA-Public Use
  Company Number: PHHY2019US003583

PATIENT
  Age: 43 Year
  Sex: Male

DRUGS (1)
  1. ZOLEDRONIC ACID [Suspect]
     Active Substance: ZOLEDRONIC ACID
     Indication: MELORHEOSTOSIS
     Route: 042

REACTIONS (2)
  - Osteonecrosis of jaw [Recovering/Resolving]
  - Product use in unapproved indication [Unknown]
